FAERS Safety Report 9201536 (Version 1)
Quarter: 2013Q2

REPORT INFORMATION
  Report Type: Spontaneous
  Country: US (occurrence: US)
  Receive Date: 20130401
  Receipt Date: 20130401
  Transmission Date: 20140414
  Serious: Yes (Other)
  Sender: FDA-Public Use
  Company Number: US-PFIZER INC-2013100954

PATIENT
  Age: 61 Year
  Sex: Male

DRUGS (3)
  1. ZOLOFT [Suspect]
     Dosage: UNK
     Dates: start: 201209
  2. ZOLOFT [Suspect]
     Dosage: 100 MG, 1X/DAY
  3. ZOLPIDEM TARTRATE [Suspect]
     Dosage: UNK

REACTIONS (2)
  - Dyskinesia [Unknown]
  - Drooling [Unknown]
